FAERS Safety Report 7529160-0 (Version None)
Quarter: 2011Q2

REPORT INFORMATION
  Report Type: 
  Country: None (occurrence: None)
  Receive Date: 20110607
  Receipt Date: 20050301
  Transmission Date: 20111010
  Serious: Yes (Death)
  Sender: FDA-Public Use
  Company Number: PHHO2004CA18569

PATIENT
  Sex: Male

DRUGS (7)
  1. CLOZARIL [Suspect]
     Dosage: 300 MG, UNK
     Dates: start: 20020207
  2. SEROQUEL [Concomitant]
  3. COGENTIN [Concomitant]
  4. VENTOLIN HFA [Concomitant]
  5. COLACE [Concomitant]
  6. SENOKOT [Concomitant]
  7. ATROVENT [Concomitant]

REACTIONS (3)
  - PNEUMONIA [None]
  - SEPSIS [None]
  - NEOPLASM MALIGNANT [None]
